FAERS Safety Report 22006019 (Version 1)
Quarter: 2023Q1

REPORT INFORMATION
  Report Type: Spontaneous
  Country: US (occurrence: US)
  Receive Date: 20230217
  Receipt Date: 20230217
  Transmission Date: 20230418
  Serious: Yes (Other)
  Sender: FDA-Public Use
  Company Number: US-PFIZER INC-PV202300028283

PATIENT
  Age: 4 Decade
  Sex: Female

DRUGS (1)
  1. MILRINONE [Suspect]
     Active Substance: MILRINONE
     Indication: Cardiogenic shock
     Dosage: UNK

REACTIONS (3)
  - Platelet aggregation inhibition [Unknown]
  - Tracheal haemorrhage [Unknown]
  - Gastrointestinal haemorrhage [Unknown]
